FAERS Safety Report 19079325 (Version 1)
Quarter: 2021Q1

REPORT INFORMATION
  Report Type: Spontaneous
  Country: ES (occurrence: ES)
  Receive Date: 20210331
  Receipt Date: 20210331
  Transmission Date: 20210420
  Serious: Yes (Other)
  Sender: FDA-Public Use
  Company Number: NVSC2021ES068566

PATIENT
  Age: 30 Year
  Sex: Female
  Weight: 51 kg

DRUGS (3)
  1. TEGRETOL [Suspect]
     Active Substance: CARBAMAZEPINE
     Indication: EPILEPSY
     Dosage: 400 MG, Q12H (100 COMPRIMIDOS)
     Route: 048
     Dates: start: 20210212
  2. ETINILESTRADIOL/DROSPIRENONA MYLAN PHARMACEUT [Concomitant]
     Indication: ORAL CONTRACEPTION
     Dosage: 1 DF, QD (1 COMPRIMIT AL DIA)(28 COMPRIMIDOS)
     Route: 048
     Dates: start: 20110301
  3. KEPPRA [Concomitant]
     Active Substance: LEVETIRACETAM
     Indication: EPILEPSY
     Dosage: 500 MG, QD (1 COMPRIMIT AL DIA)(60 TABLETS)
     Route: 048
     Dates: start: 20200927

REACTIONS (3)
  - Rash [Recovering/Resolving]
  - Face oedema [Recovering/Resolving]
  - Polymenorrhoea [Recovered/Resolved]

NARRATIVE: CASE EVENT DATE: 20210217
